FAERS Safety Report 9197477 (Version 1)
Quarter: 2013Q1

REPORT INFORMATION
  Report Type: Spontaneous
  Country: US (occurrence: US)
  Receive Date: 20130328
  Receipt Date: 20130328
  Transmission Date: 20140127
  Serious: Yes (Death)
  Sender: FDA-Public Use
  Company Number: US-PFIZER INC-2013099141

PATIENT
  Age: 63 Year
  Sex: Male

DRUGS (9)
  1. CHLOROMYCETIN [Suspect]
     Indication: PYURIA
     Dosage: 0.5 G, 4X/DAY
     Route: 048
     Dates: start: 19490919
  2. CHLOROMYCETIN [Suspect]
     Dosage: 0.25 G, 4X/DAY
     Route: 048
  3. CHLOROMYCETIN [Suspect]
     Dosage: 0.25 G, 3X/DAY
     Route: 048
     Dates: end: 19491002
  4. CHLOROMYCETIN [Suspect]
     Dosage: 2 TO 3 DF DAILY
     Route: 048
     Dates: end: 19491024
  5. CHLOROMYCETIN [Suspect]
     Dosage: 3 DF, 1X/DAY
     Dates: end: 19491108
  6. CHLOROMYCETIN [Suspect]
     Dosage: 2 DF, 1X/DAY
     Dates: end: 19491129
  7. CHLOROMYCETIN [Suspect]
     Dosage: 1 DF, 3X/DAY
     Dates: end: 19491213
  8. AUREOMYCIN [Concomitant]
     Dosage: 0.25 G, 3X/DAY FOR 2 DAYS
  9. BENZYLPENICILLIN POTASSIUM [Concomitant]
     Dosage: 400000 UNITS DAILY
     Dates: start: 19490829, end: 19490907

REACTIONS (1)
  - Aplastic anaemia [Fatal]
